FAERS Safety Report 12795788 (Version 1)
Quarter: 2016Q3

REPORT INFORMATION
  Report Type: Spontaneous
  Country: IN (occurrence: IN)
  Receive Date: 20160929
  Receipt Date: 20160929
  Transmission Date: 20161109
  Serious: Yes (Death, Other)
  Sender: FDA-Public Use
  Company Number: IN-MYLANLABS-2016M1041401

PATIENT

DRUGS (2)
  1. RIFAMPICIN [Suspect]
     Active Substance: RIFAMPIN
     Indication: MASTITIS BACTERIAL
     Dosage: 450MG
     Route: 048
  2. ISONIAZID. [Concomitant]
     Active Substance: ISONIAZID
     Indication: MASTITIS BACTERIAL
     Dosage: 300MG
     Route: 065

REACTIONS (7)
  - Anaphylactic reaction [Fatal]
  - Angioedema [Recovering/Resolving]
  - Pneumonia bacterial [Fatal]
  - Type IV hypersensitivity reaction [Unknown]
  - Sepsis [Fatal]
  - Acute respiratory distress syndrome [Fatal]
  - Shock [Recovering/Resolving]
